FAERS Safety Report 10616494 (Version 1)
Quarter: 2014Q4

REPORT INFORMATION
  Report Type: Report from Study
  Country: CA (occurrence: CA)
  Receive Date: 20141201
  Receipt Date: 20141201
  Transmission Date: 20150529
  Serious: Yes (Other)
  Sender: FDA-Public Use
  Company Number: CA-BRISTOL-MYERS SQUIBB COMPANY-21644984

PATIENT
  Age: 70 Year
  Sex: Female

DRUGS (9)
  1. PREDNISONE. [Concomitant]
     Active Substance: PREDNISONE
  2. ARAVA [Concomitant]
     Active Substance: LEFLUNOMIDE
  3. METHOTREXATE [Concomitant]
     Active Substance: METHOTREXATE
  4. SULFASALAZINE. [Concomitant]
     Active Substance: SULFASALAZINE
  5. FOLIC ACID. [Concomitant]
     Active Substance: FOLIC ACID
  6. LISINOPRIL. [Concomitant]
     Active Substance: LISINOPRIL
  7. ORENCIA [Suspect]
     Active Substance: ABATACEPT
     Indication: RHEUMATOID ARTHRITIS
     Route: 042
     Dates: start: 20120209
  8. CELEBREX [Concomitant]
     Active Substance: CELECOXIB
  9. OMEPRAZOLE. [Concomitant]
     Active Substance: OMEPRAZOLE

REACTIONS (1)
  - Arthritis [Unknown]
